FAERS Safety Report 11317597 (Version 1)
Quarter: 2015Q3

REPORT INFORMATION
  Report Type: Other
  Country: GB (occurrence: GB)
  Receive Date: 20150728
  Receipt Date: 20150728
  Transmission Date: 20151125
  Serious: Yes (Death, Hospitalization)
  Sender: FDA-Public Use
  Company Number: GB-MYLANLABS-2015M1024175

PATIENT

DRUGS (4)
  1. DOXORUBICIN [Suspect]
     Active Substance: DOXORUBICIN
     Dosage: 48 MG, UNK (CONTAINER TYPE/SIZE: 200MG/200ML)
  2. DACARBAZINE. [Suspect]
     Active Substance: DACARBAZINE
     Dosage: 720 MG, UNK(IN SODIUM CHRLORIDE 0.9% BP. CONTAINER TYPE/SIZE: 1000MG.)
  3. VINBLASTINE [Suspect]
     Active Substance: VINBLASTINE
     Dosage: 11.5 MG, UNK (IN SODIUM CHLORIDE 0.9% BP. CONTAINER TYPE/SIZE: 10MG/10ML.)
  4. BLEOMYCIN [Suspect]
     Active Substance: BLEOMYCIN SULFATE
     Dosage: IN SODIUM CHLORIDE 0.9% BP. ?CONTAINER TYPE/SIZE: 15000IU

REACTIONS (5)
  - Chest pain [Not Recovered/Not Resolved]
  - Death [Fatal]
  - Malaise [Not Recovered/Not Resolved]
  - Abdominal pain upper [Not Recovered/Not Resolved]
  - Feeling hot [Not Recovered/Not Resolved]
